FAERS Safety Report 7128066-9 (Version None)
Quarter: 2010Q4

REPORT INFORMATION
  Report Type: 
  Country: None (occurrence: None)
  Receive Date: 20101130
  Receipt Date: 20100922
  Transmission Date: 20110411
  Serious: No
  Sender: FDA-Public Use
  Company Number: US-ALLERGAN-1012322US

PATIENT
  Age: 80 Year
  Sex: Male

DRUGS (1)
  1. ZYMAXID [Suspect]
     Indication: PRODUCT USED FOR UNKNOWN INDICATION
     Dosage: 1 GTT, BID
     Route: 047
     Dates: start: 20100919, end: 20100922

REACTIONS (3)
  - APPLICATION SITE PAIN [None]
  - VISION BLURRED [None]
  - VISUAL IMPAIRMENT [None]
